FAERS Safety Report 6057376-1 (Version None)
Quarter: 2009Q1

REPORT INFORMATION
  Report Type: 
  Country: None (occurrence: None)
  Receive Date: 20090126
  Receipt Date: 20090126
  Transmission Date: 20090719
  Serious: No
  Sender: FDA-Public Use
  Company Number: None

PATIENT
  Age: 43 Year
  Sex: Male
  Weight: 108.8633 kg

DRUGS (3)
  1. TORADOL [Suspect]
     Indication: INFECTION
  2. TORADOL [Suspect]
     Indication: NEPHROLITHIASIS
  3. TORADOL [Suspect]
     Indication: RENAL PAIN

REACTIONS (9)
  - ALCOHOL POISONING [None]
  - BIPOLAR I DISORDER [None]
  - BORDERLINE PERSONALITY DISORDER [None]
  - CRYING [None]
  - DEREALISATION [None]
  - DISORIENTATION [None]
  - DIZZINESS [None]
  - FEELING DRUNK [None]
  - INAPPROPRIATE AFFECT [None]
